FAERS Safety Report 17207222 (Version 1)
Quarter: 2019Q4

REPORT INFORMATION
  Report Type: Spontaneous
  Country: TW (occurrence: TW)
  Receive Date: 20191227
  Receipt Date: 20191227
  Transmission Date: 20200122
  Serious: Yes (Other)
  Sender: FDA-Public Use
  Company Number: TW-FRESENIUS KABI-FK201914470

PATIENT
  Age: 48 Year
  Sex: Male

DRUGS (3)
  1. FLUOROURACIL (MANUFACTURER UNKNOWN) [Suspect]
     Active Substance: FLUOROURACIL
     Indication: TONSIL CANCER
     Dosage: ON DAY 1
     Route: 041
  2. DOCETAXEL. [Suspect]
     Active Substance: DOCETAXEL
     Indication: TONSIL CANCER
     Dosage: ON DAY 1
     Route: 065
  3. CISPLATIN (MANUFACTURER UNKNOWN) [Suspect]
     Active Substance: CISPLATIN
     Indication: TONSIL CANCER
     Dosage: ON DAY 1
     Route: 065

REACTIONS (4)
  - Palmar-plantar erythrodysaesthesia syndrome [Recovered/Resolved]
  - Stomatitis [Recovered/Resolved]
  - Rash maculo-papular [Recovered/Resolved]
  - Dysphagia [Recovered/Resolved]
